FAERS Safety Report 19737678 (Version 1)
Quarter: 2021Q3

REPORT INFORMATION
  Report Type: Spontaneous
  Country: US (occurrence: US)
  Receive Date: 20210824
  Receipt Date: 20210824
  Transmission Date: 20211014
  Serious: No
  Sender: FDA-Public Use
  Company Number: US-UNITED THERAPEUTICS-UNT-2021-016270

PATIENT
  Sex: Female

DRUGS (2)
  1. TYVASO [Suspect]
     Active Substance: TREPROSTINIL
     Indication: PULMONARY ARTERIAL HYPERTENSION
     Dosage: UNK
     Dates: start: 20210722
  2. TYVASO [Suspect]
     Active Substance: TREPROSTINIL
     Dosage: 24 ?G, QID
     Dates: start: 2021

REACTIONS (8)
  - Arthralgia [Unknown]
  - Asthenia [Unknown]
  - Productive cough [Unknown]
  - Dizziness [Unknown]
  - Ear pruritus [Unknown]
  - Myalgia [Unknown]
  - Cough [Unknown]
  - Ear discomfort [Unknown]

NARRATIVE: CASE EVENT DATE: 2021
